FAERS Safety Report 4675720-4 (Version None)
Quarter: 2005Q2

REPORT INFORMATION
  Report Type: 
  Country: None (occurrence: None)
  Receive Date: 20050527
  Receipt Date: 20050218
  Transmission Date: 20051028
  Serious: Yes (Other)
  Sender: FDA-Public Use
  Company Number: US-BRISTOL-MYERS SQUIBB COMPANY-12869038

PATIENT
  Sex: Male

DRUGS (5)
  1. ERBITUX [Suspect]
     Indication: COLORECTAL CANCER METASTATIC
     Route: 042
     Dates: start: 20050218
  2. BENADRYL [Concomitant]
     Indication: PREMEDICATION
     Dates: start: 20050218
  3. DECADRON [Concomitant]
     Indication: PREMEDICATION
     Dates: start: 20050218
  4. ZANTAC [Concomitant]
     Indication: PREMEDICATION
     Dates: start: 20050218
  5. CAMPTOSAR [Concomitant]

REACTIONS (1)
  - HYPERSENSITIVITY [None]
